FAERS Safety Report 8972328 (Version 1)
Quarter: 2012Q4

REPORT INFORMATION
  Report Type: 
  Country: AU (occurrence: AU)
  Receive Date: 20121218
  Receipt Date: 20121218
  Transmission Date: 20130627
  Serious: Yes (Other)
  Sender: FDA-Public Use
  Company Number: PHHY2012AU115030

PATIENT
  Sex: Male

DRUGS (5)
  1. BACLOFEN [Suspect]
  2. DICLOFENAC [Suspect]
  3. PARACETAMOL [Suspect]
  4. COTRIMOXAZOLE [Suspect]
  5. FELODIPINE [Suspect]

REACTIONS (4)
  - Hypertension [Unknown]
  - Hypotension [Unknown]
  - Tachycardia [Unknown]
  - Overdose [Unknown]
